FAERS Safety Report 5536312-8 (Version None)
Quarter: 2007Q4

REPORT INFORMATION
  Report Type: 
  Country: None (occurrence: None)
  Receive Date: 20071206
  Receipt Date: 20071109
  Transmission Date: 20080405
  Serious: No
  Sender: FDA-Public Use
  Company Number: US-BOEHRINGER INGELHEIM PHARMACEUTICALS, INC.-2007-BP-23555BP

PATIENT
  Sex: Male

DRUGS (5)
  1. FLOMAX [Suspect]
     Indication: POLLAKIURIA
     Route: 048
     Dates: start: 20070510, end: 20071102
  2. METOPROLOL SUCCINATE [Concomitant]
  3. FINASTERIDE [Concomitant]
  4. ASPIRIN [Concomitant]
  5. VITAMIN [Concomitant]

REACTIONS (1)
  - DRUG INEFFECTIVE [None]
